FAERS Safety Report 5717449-7 (Version None)
Quarter: 2008Q2

REPORT INFORMATION
  Report Type: 
  Country: None (occurrence: None)
  Receive Date: 20080424
  Receipt Date: 20080424
  Transmission Date: 20081010
  Serious: Yes (Hospitalization)
  Sender: FDA-Public Use
  Company Number: None

PATIENT
  Age: 58 Year
  Sex: Male
  Weight: 105 kg

DRUGS (2)
  1. EPTIFIBATIDE [Suspect]
     Dates: start: 20080227, end: 20080228
  2. CLOPIDOGREL [Suspect]
     Dates: start: 20080226

REACTIONS (4)
  - ANAEMIA POSTOPERATIVE [None]
  - MUSCLE HAEMORRHAGE [None]
  - POST PROCEDURAL HAEMORRHAGE [None]
  - RETROPERITONEAL HAEMATOMA [None]
